FAERS Safety Report 14383197 (Version 1)
Quarter: 2018Q1

REPORT INFORMATION
  Report Type: Spontaneous
  Country: FR (occurrence: FR)
  Receive Date: 20180115
  Receipt Date: 20180115
  Transmission Date: 20180509
  Serious: Yes (Hospitalization)
  Sender: FDA-Public Use
  Company Number: FR-CIPLA LTD.-2018FR00290

PATIENT

DRUGS (5)
  1. ESCITALOPRAM [Suspect]
     Active Substance: ESCITALOPRAM OXALATE
     Indication: DEPRESSION
     Dosage: 10 MG, DAILY
     Route: 048
     Dates: start: 20171106, end: 20171117
  2. AMLODIPINE [Suspect]
     Active Substance: AMLODIPINE BESYLATE
     Indication: HYPERTENSION
     Dosage: 5 MG, DAILY
     Route: 048
     Dates: end: 20171117
  3. CARBONATE DE CALCIUM [Suspect]
     Active Substance: CALCIUM CARBONATE
     Dosage: 1 DF, DAILY
     Route: 048
     Dates: end: 20171117
  4. DOMPERIDONE [Suspect]
     Active Substance: DOMPERIDONE
     Dosage: UNK
     Route: 048
     Dates: end: 20171117
  5. TRANSULOSE, GELEE ORALEEN POT [Suspect]
     Active Substance: LACTULOSE\MINERAL OIL\PARAFFIN
     Dosage: UNK
     Route: 048
     Dates: end: 20171117

REACTIONS (1)
  - Hyponatraemia [Recovering/Resolving]

NARRATIVE: CASE EVENT DATE: 20171116
